FAERS Safety Report 19517581 (Version 1)
Quarter: 2021Q3

REPORT INFORMATION
  Report Type: Report from Study
  Country: IT (occurrence: IT)
  Receive Date: 20210712
  Receipt Date: 20210712
  Transmission Date: 20211014
  Serious: Yes (Other)
  Sender: FDA-Public Use
  Company Number: IT-TEVA-2021-IT-1931667

PATIENT
  Age: 80 Year
  Sex: Male

DRUGS (3)
  1. ASCRIPTIN [Concomitant]
     Active Substance: ASPIRIN
  2. BISOPROLOL HEMIFUMARATE [Suspect]
     Active Substance: BISOPROLOL FUMARATE
     Dosage: 1.25 MG
     Route: 048
     Dates: start: 20210101, end: 20210524
  3. CATAPRESAN TTS?1 2,5 MG CEROTTI TRANSDERMICI [Suspect]
     Active Substance: CLONIDINE
     Dates: start: 20210101, end: 20210524

REACTIONS (2)
  - Bradycardia [Not Recovered/Not Resolved]
  - Presyncope [Not Recovered/Not Resolved]

NARRATIVE: CASE EVENT DATE: 20210524
